FAERS Safety Report 9768950 (Version 1)
Quarter: 2013Q4

REPORT INFORMATION
  Report Type: Spontaneous
  Country: DE (occurrence: None)
  Receive Date: 20131216
  Receipt Date: 20131216
  Transmission Date: 20140711
  Serious: Yes (Hospitalization, Other)
  Sender: FDA-Public Use
  Company Number: 2013-DE-004097

PATIENT
  Age: 82 Year
  Sex: Female

DRUGS (3)
  1. XYREM (SODIUM OXYBATE) ORAL SOLUTION, 500MG/ML [Suspect]
     Indication: NARCOLEPSY
     Dates: start: 2012
  2. CLOMIPRAMINE (CLOMIPRAMINE HYDROCHLORIDE) [Concomitant]
  3. THYROID PREPARATIONS [Concomitant]

REACTIONS (9)
  - Circulatory collapse [None]
  - Arrhythmia [None]
  - Condition aggravated [None]
  - Respiratory disorder [None]
  - Unresponsive to stimuli [None]
  - Depressed level of consciousness [None]
  - Sleep disorder [None]
  - Drug prescribing error [None]
  - Inappropriate schedule of drug administration [None]
